FAERS Safety Report 6737513-3 (Version None)
Quarter: 2010Q2

REPORT INFORMATION
  Report Type: 
  Country: None (occurrence: None)
  Receive Date: 20100520
  Receipt Date: 20100507
  Transmission Date: 20101027
  Serious: Yes (Hospitalization)
  Sender: FDA-Public Use
  Company Number: 584748

PATIENT
  Age: 43 Year
  Sex: Male

DRUGS (2)
  1. METHYLPREDNISOLONE [Suspect]
     Indication: PSORIATIC ARTHROPATHY
  2. (ETANERCEPT) [Suspect]
     Indication: PSORIATIC ARTHROPATHY

REACTIONS (15)
  - BLOOD CREATINE INCREASED [None]
  - BLOOD PARATHYROID HORMONE INCREASED [None]
  - BLOOD PHOSPHORUS INCREASED [None]
  - BLOOD PRESSURE INCREASED [None]
  - BLOOD UREA INCREASED [None]
  - CALCIPHYLAXIS [None]
  - ENTEROCOCCAL SEPSIS [None]
  - ESCHAR [None]
  - HAEMOGLOBIN DECREASED [None]
  - HEART RATE INCREASED [None]
  - PAIN [None]
  - PRURITUS [None]
  - SECRETION DISCHARGE [None]
  - SKIN LESION [None]
  - TRANSAMINASES INCREASED [None]
